FAERS Safety Report 7112459-X (Version None)
Quarter: 2010Q4

REPORT INFORMATION
  Report Type: 
  Country: None (occurrence: None)
  Receive Date: 20101119
  Receipt Date: 20100416
  Transmission Date: 20110411
  Serious: Yes (Hospitalization)
  Sender: FDA-Public Use
  Company Number: US-BAYER-201019748NA

PATIENT
  Age: 27 Year
  Sex: Female
  Weight: 91 kg

DRUGS (9)
  1. YAZ [Suspect]
     Indication: ORAL CONTRACEPTION
     Route: 048
     Dates: start: 20060101, end: 20080101
  2. YASMIN [Suspect]
     Indication: PRODUCT USED FOR UNKNOWN INDICATION
     Route: 048
  3. ADVIL [Concomitant]
  4. ASTHMA MED [Concomitant]
  5. DIURETICS [Concomitant]
  6. HYPERTENSION MED [Concomitant]
  7. IBUPROFEN [Concomitant]
  8. MIGRAINE MED [Concomitant]
     Indication: MIGRAINE
  9. POTASSIUM CHLORIDE [Concomitant]

REACTIONS (8)
  - CHRONIC OBSTRUCTIVE PULMONARY DISEASE [None]
  - DEEP VEIN THROMBOSIS [None]
  - HOMANS' SIGN [None]
  - HYPOAESTHESIA [None]
  - OSTEOCHONDROSIS [None]
  - PAIN IN EXTREMITY [None]
  - PARAESTHESIA [None]
  - PULMONARY EMBOLISM [None]
